FAERS Safety Report 14394309 (Version 1)
Quarter: 2018Q1

REPORT INFORMATION
  Report Type: Spontaneous
  Country: US (occurrence: US)
  Receive Date: 20180116
  Receipt Date: 20180116
  Transmission Date: 20180509
  Serious: No
  Sender: FDA-Public Use
  Company Number: US-REGENERON PHARMACEUTICALS, INC.-2017-20947

PATIENT

DRUGS (4)
  1. EYLEA [Suspect]
     Active Substance: AFLIBERCEPT
     Dosage: 2 MG,EVERY 4 TO 6 WEEKS, OS , LAST DOSE
     Route: 031
     Dates: start: 20170824, end: 20170824
  2. EYLEA [Suspect]
     Active Substance: AFLIBERCEPT
     Indication: MACULAR DEGENERATION
     Dosage: 2 MG,EVERY 4 TO 6 WEEKS, OU
     Route: 031
     Dates: start: 2017
  3. EYLEA [Suspect]
     Active Substance: AFLIBERCEPT
     Dosage: 2 MG,EVERY 4 TO 6 WEEKS, OD , LAST DOSE
     Route: 031
     Dates: start: 20170824, end: 20170824
  4. ARTIFICIAL TEARS                   /00222401/ [Concomitant]
     Active Substance: PROPYLENE GLYCOL
     Indication: PRODUCT USED FOR UNKNOWN INDICATION

REACTIONS (1)
  - Corneal abrasion [Recovered/Resolved]

NARRATIVE: CASE EVENT DATE: 20170825
